FAERS Safety Report 8687684 (Version 2)
Quarter: 2012Q4

REPORT INFORMATION
  Report Type: 
  Country: AU (occurrence: AU)
  Receive Date: 20120727
  Receipt Date: 20120830
  Transmission Date: 20130627
  Serious: Yes (Other)
  Sender: FDA-Public Use
  Company Number: PHHY2012AU064392

PATIENT

DRUGS (1)
  1. GILENYA [Suspect]
     Indication: MULTIPLE SCLEROSIS
     Dosage: 0.5 mg, UNK
     Route: 048
     Dates: start: 201205

REACTIONS (4)
  - Neuropathy peripheral [Recovering/Resolving]
  - Polyneuropathy [Unknown]
  - Dysaesthesia [Unknown]
  - Paraesthesia [Unknown]
